FAERS Safety Report 11592209 (Version 2)
Quarter: 2016Q1

REPORT INFORMATION
  Report Type: Report from Study
  Country: GB (occurrence: GB)
  Receive Date: 20151005
  Receipt Date: 20160121
  Transmission Date: 20160525
  Serious: Yes (Other)
  Sender: FDA-Public Use
  Company Number: GB-ROCHE-1612485

PATIENT
  Sex: Male

DRUGS (2)
  1. ESBRIET [Suspect]
     Active Substance: PIRFENIDONE
     Indication: IDIOPATHIC PULMONARY FIBROSIS
     Route: 048
     Dates: end: 20160106
  2. OXYGEN. [Concomitant]
     Active Substance: OXYGEN
     Dosage: AS NECESSARY
     Route: 065

REACTIONS (10)
  - Pulmonary function test decreased [Unknown]
  - Food aversion [Unknown]
  - Decreased appetite [Unknown]
  - Nasopharyngitis [Recovered/Resolved]
  - Gastrooesophageal reflux disease [Unknown]
  - Nausea [Unknown]
  - General physical health deterioration [Unknown]
  - Lower respiratory tract infection [Recovered/Resolved]
  - Sputum abnormal [Unknown]
  - Weight decreased [Unknown]
